FAERS Safety Report 16215057 (Version 1)
Quarter: 2019Q2

REPORT INFORMATION
  Report Type: Spontaneous
  Country: US (occurrence: US)
  Receive Date: 20190418
  Receipt Date: 20190418
  Transmission Date: 20190711
  Serious: No
  Sender: FDA-Public Use
  Company Number: US-BRISTOL-MYERS SQUIBB COMPANY-BMS-2019-036102

PATIENT
  Age: 48 Year
  Sex: Male
  Weight: 74.83 kg

DRUGS (1)
  1. OPDIVO [Suspect]
     Active Substance: NIVOLUMAB
     Indication: HEAD AND NECK CANCER METASTATIC
     Dosage: UNK UNK, QMO
     Route: 042
     Dates: start: 201901

REACTIONS (2)
  - Groin pain [Unknown]
  - Back pain [Unknown]

NARRATIVE: CASE EVENT DATE: 20190201
